FAERS Safety Report 6662242-4 (Version None)
Quarter: 2010Q1

REPORT INFORMATION
  Report Type: 
  Country: None (occurrence: None)
  Receive Date: 20100331
  Receipt Date: 20100326
  Transmission Date: 20100710
  Serious: Yes (Death, Life-Threatening, Other)
  Sender: FDA-Public Use
  Company Number: CA-SANOFI-AVENTIS-200920678GDDC

PATIENT
  Age: 81 Year
  Sex: Male

DRUGS (8)
  1. INSULIN GLARGINE [Suspect]
     Route: 058
     Dates: start: 20041108, end: 20080824
  2. OPTIPEN [Suspect]
  3. BLINDED THERAPY [Suspect]
     Dates: start: 20041108, end: 20080824
  4. METFORMIN (GLUCOPHAGE) [Concomitant]
     Dates: start: 20041001, end: 20080801
  5. AAS [Concomitant]
     Dates: start: 20041001, end: 20080801
  6. LENTIZOL [Concomitant]
     Indication: DEPRESSION
     Dates: start: 20080601, end: 20080801
  7. ENALAPRIL MALEATE [Concomitant]
     Indication: HYPERTENSION
     Dates: start: 20080401, end: 20080801
  8. NITROGLYCERIN [Concomitant]
     Dates: start: 20041001, end: 20080801

REACTIONS (1)
  - PANCREATIC CARCINOMA [None]
